FAERS Safety Report 8329171-1 (Version None)
Quarter: 2012Q2

REPORT INFORMATION
  Report Type: 
  Country: None (occurrence: None)
  Receive Date: 20120502
  Receipt Date: 20120424
  Transmission Date: 20120825
  Serious: Yes (Hospitalization, Other)
  Sender: FDA-Public Use
  Company Number: JP-SANOFI-AVENTIS-2012SA028845

PATIENT
  Sex: Male
  Weight: 67 kg

DRUGS (15)
  1. OXALIPLATIN [Suspect]
     Route: 041
     Dates: start: 20110805, end: 20110805
  2. OXALIPLATIN [Suspect]
     Route: 041
     Dates: start: 20110722, end: 20110722
  3. OXALIPLATIN [Suspect]
     Route: 041
     Dates: start: 20110826, end: 20110826
  4. DEXAMETHASONE SODIUM PHOSPHATE [Concomitant]
     Dates: start: 20110411, end: 20111021
  5. OXALIPLATIN [Suspect]
     Route: 041
     Dates: start: 20110909, end: 20110909
  6. OXALIPLATIN [Suspect]
     Route: 041
     Dates: start: 20111021, end: 20111021
  7. OXALIPLATIN [Suspect]
     Indication: COLON CANCER
     Route: 041
     Dates: start: 20110411, end: 20110411
  8. OXALIPLATIN [Suspect]
     Route: 041
     Dates: start: 20110523, end: 20110523
  9. OXALIPLATIN [Suspect]
     Route: 041
     Dates: start: 20110620, end: 20110620
  10. OXALIPLATIN [Suspect]
     Route: 041
     Dates: start: 20111007, end: 20111007
  11. FLUOROURACIL [Concomitant]
     Route: 041
     Dates: start: 20110411, end: 20111021
  12. OXALIPLATIN [Suspect]
     Route: 041
     Dates: start: 20110425, end: 20110425
  13. OXALIPLATIN [Suspect]
     Route: 041
     Dates: start: 20110509, end: 20110509
  14. LEUCOVORIN CALCIUM [Concomitant]
     Dates: start: 20110411, end: 20111021
  15. FLUOROURACIL [Concomitant]
     Route: 040
     Dates: start: 20110411, end: 20111021

REACTIONS (8)
  - NEUROPATHY PERIPHERAL [None]
  - ALOPECIA [None]
  - GASTRIC ULCER HAEMORRHAGE [None]
  - MALAISE [None]
  - STOMATITIS [None]
  - DECREASED APPETITE [None]
  - NAUSEA [None]
  - PLATELET COUNT DECREASED [None]
